FAERS Safety Report 12871854 (Version 1)
Quarter: 2016Q4

REPORT INFORMATION
  Report Type: Report from Study
  Country: US (occurrence: US)
  Receive Date: 20161021
  Receipt Date: 20161021
  Transmission Date: 20170207
  Serious: No
  Sender: FDA-Public Use
  Company Number: US-AMGEN-USASL2016132782

PATIENT
  Age: 51 Year
  Sex: Male

DRUGS (1)
  1. ENBREL [Suspect]
     Active Substance: ETANERCEPT
     Indication: RHEUMATOID ARTHRITIS
     Dosage: UNK UNK, QWK
     Route: 065

REACTIONS (7)
  - Vertigo [Unknown]
  - Fall [Unknown]
  - Paraesthesia [Unknown]
  - Feeling abnormal [Unknown]
  - Eye irritation [Unknown]
  - Herpes virus infection [Unknown]
  - Eye discharge [Unknown]

NARRATIVE: CASE EVENT DATE: 2015
